FAERS Safety Report 12905386 (Version 2)
Quarter: 2016Q4

REPORT INFORMATION
  Report Type: Report from Study
  Country: IT (occurrence: IT)
  Receive Date: 20161103
  Receipt Date: 20161111
  Transmission Date: 20170207
  Serious: Yes (Hospitalization, Other)
  Sender: FDA-Public Use
  Company Number: IT-BRISTOL-MYERS SQUIBB COMPANY-BMS-2016-090748

PATIENT
  Age: 63 Year
  Sex: Female

DRUGS (1)
  1. NIVOLUMAB [Suspect]
     Active Substance: NIVOLUMAB
     Indication: NON-SMALL CELL LUNG CANCER
     Dosage: 3 MG/KG, Q2WK
     Route: 042

REACTIONS (8)
  - Asthenia [Unknown]
  - Cachexia [Unknown]
  - Dyspnoea [Unknown]
  - Visual acuity reduced [Unknown]
  - Cough [Unknown]
  - Decreased appetite [Unknown]
  - General physical health deterioration [Unknown]
  - Somnolence [Unknown]

NARRATIVE: CASE EVENT DATE: 20160329
